FAERS Safety Report 6120083-0 (Version None)
Quarter: 2009Q1

REPORT INFORMATION
  Report Type: 
  Country: None (occurrence: None)
  Receive Date: 20090311
  Receipt Date: 20090227
  Transmission Date: 20090719
  Serious: Yes (Death, Hospitalization)
  Sender: FDA-Public Use
  Company Number: 2009PL000068

PATIENT
  Age: 51 Year
  Sex: Male

DRUGS (1)
  1. AZATHIOPRINE [Suspect]
     Indication: MULTIPLE SCLEROSIS
     Dosage: 50 MG

REACTIONS (4)
  - DECUBITUS ULCER [None]
  - METASTASES TO LYMPH NODES [None]
  - NEOPLASM RECURRENCE [None]
  - NEUROENDOCRINE CARCINOMA OF THE SKIN [None]
